FAERS Safety Report 10733261 (Version 1)
Quarter: 2015Q1

REPORT INFORMATION
  Report Type: Spontaneous
  Country: US (occurrence: US)
  Receive Date: 20150123
  Receipt Date: 20150123
  Transmission Date: 20150721
  Serious: Yes (Other)
  Sender: FDA-Public Use
  Company Number: US-TEVA-535914USA

PATIENT
  Sex: Female

DRUGS (1)
  1. MIMVEY [Suspect]
     Active Substance: ESTRADIOL\NORETHINDRONE ACETATE
     Indication: UTERINE DISORDER

REACTIONS (5)
  - Metrorrhagia [Unknown]
  - Hot flush [Unknown]
  - Menorrhagia [Unknown]
  - Haemorrhage [Unknown]
  - Night sweats [Unknown]
